FAERS Safety Report 8136363-3 (Version None)
Quarter: 2012Q1

REPORT INFORMATION
  Report Type: 
  Country: None (occurrence: None)
  Receive Date: 20120214
  Receipt Date: 20120206
  Transmission Date: 20120608
  Serious: Yes (Hospitalization)
  Sender: FDA-Public Use
  Company Number: FR-NAPPMUNDI-GBR-2011-0009103

PATIENT
  Sex: Female

DRUGS (7)
  1. LOVENOX [Suspect]
     Indication: THROMBOSIS
     Dosage: UNK
     Route: 058
     Dates: start: 20110726, end: 20110808
  2. OXYCODONE HYDROCHLORIDE [Suspect]
     Indication: PAIN
     Dosage: 5 MG, DAILY
     Route: 048
     Dates: start: 20110726
  3. LEVOFLOXACIN [Suspect]
     Indication: NASOPHARYNGITIS
     Dosage: UNK
     Dates: start: 20110714, end: 20110722
  4. PIPERACILLIN/TAZOBACTAM [Suspect]
     Indication: LUNG DISORDER
     Dosage: UNK
     Route: 048
     Dates: start: 20110731, end: 20110812
  5. GENTAMICIN [Suspect]
     Indication: SEPSIS
     Dosage: UNK
     Dates: start: 20110725, end: 20110804
  6. TARGOCID [Suspect]
     Indication: SEPSIS
     Dosage: 600 MG, BID
     Route: 048
     Dates: start: 20110725, end: 20110803
  7. HYDROXYZINE [Concomitant]
     Indication: ANXIETY
     Dosage: 150 MG, DAILY
     Route: 048

REACTIONS (1)
  - DRUG RASH WITH EOSINOPHILIA AND SYSTEMIC SYMPTOMS [None]
